FAERS Safety Report 13602500 (Version 2)
Quarter: 2017Q2

REPORT INFORMATION
  Report Type: Spontaneous
  Country: US (occurrence: US)
  Receive Date: 20170601
  Receipt Date: 20170626
  Transmission Date: 20170830
  Serious: Yes (Other)
  Sender: FDA-Public Use
  Company Number: US-BAYER-2017-102825

PATIENT
  Age: 28 Year
  Sex: Female

DRUGS (1)
  1. MIRENA [Suspect]
     Active Substance: LEVONORGESTREL
     Indication: CONTRACEPTION
     Dosage: 20 MCG/24HR, CONT
     Route: 015
     Dates: start: 20150112

REACTIONS (5)
  - Dysmenorrhoea [Not Recovered/Not Resolved]
  - Weight decreased [None]
  - Menstruation irregular [None]
  - Dyspareunia [None]
  - Gastrectomy [None]

NARRATIVE: CASE EVENT DATE: 20170526
